FAERS Safety Report 14325552 (Version 2)
Quarter: 2018Q1

REPORT INFORMATION
  Report Type: Spontaneous
  Country: NL (occurrence: NL)
  Receive Date: 20171226
  Receipt Date: 20180226
  Transmission Date: 20180509
  Serious: Yes (Other)
  Sender: FDA-Public Use
  Company Number: PHHY2017NL185742

PATIENT
  Age: 35 Year
  Sex: Male

DRUGS (3)
  1. PRAMIPEXOLE. [Suspect]
     Active Substance: PRAMIPEXOLE
     Indication: PERONEAL NERVE PALSY
  2. PRAMIPEXOLE. [Suspect]
     Active Substance: PRAMIPEXOLE
     Indication: DYSTONIA
     Dosage: 3.375 MG, QD
     Route: 065
  3. PRAMIPEXOLE. [Suspect]
     Active Substance: PRAMIPEXOLE
     Indication: PARKINSON^S DISEASE
     Dosage: 1.5 MG, QD
     Route: 065

REACTIONS (6)
  - Binge eating [Recovered/Resolved]
  - Impulse-control disorder [Recovered/Resolved]
  - Indifference [Unknown]
  - Abnormal behaviour [Unknown]
  - Gambling [Recovered/Resolved]
  - Poor quality sleep [Unknown]
